FAERS Safety Report 8581956-2 (Version None)
Quarter: 2012Q3

REPORT INFORMATION
  Report Type: 
  Country: None (occurrence: None)
  Receive Date: 20120809
  Receipt Date: 20120803
  Transmission Date: 20120928
  Serious: No
  Sender: FDA-Public Use
  Company Number: US-ASTRAZENECA-2012SE55142

PATIENT
  Sex: Female

DRUGS (2)
  1. ZOMIG [Suspect]
     Route: 048
  2. ZOMIG [Suspect]
     Indication: MIGRAINE
     Route: 048

REACTIONS (3)
  - FEELING ABNORMAL [None]
  - OFF LABEL USE [None]
  - DRUG INEFFECTIVE [None]
